FAERS Safety Report 9241066 (Version 1)
Quarter: 2013Q2

REPORT INFORMATION
  Report Type: Spontaneous
  Country: US (occurrence: None)
  Receive Date: 20130418
  Receipt Date: 20130418
  Transmission Date: 20140414
  Serious: No
  Sender: FDA-Public Use
  Company Number: None

PATIENT
  Age: 63 Year
  Sex: Male

DRUGS (19)
  1. CIPROFLOXACIN [Suspect]
     Indication: PRODUCT USED FOR UNKNOWN INDICATION
     Route: 048
     Dates: start: 20120807, end: 20120812
  2. AMLODIPINE [Concomitant]
  3. ARANESP [Concomitant]
  4. ASA [Concomitant]
  5. LIPITOR [Concomitant]
  6. CALCIUM ACETATE [Concomitant]
  7. ERGOCALCIFEROL [Concomitant]
  8. FERROUS SULFATE [Concomitant]
  9. NEPHROVITE [Concomitant]
  10. HEPARIN [Concomitant]
  11. HYDRALAZINE [Concomitant]
  12. MEGESTROL [Concomitant]
  13. METOPROLOL [Concomitant]
  14. TAMSULOSIN [Concomitant]
  15. ACETAMINOPHEN [Concomitant]
  16. DOCUSATE [Concomitant]
  17. FUROSEMIDE [Concomitant]
  18. ISOSORBIDE MONONITRATE [Concomitant]
  19. INSULIN ASPART [Concomitant]

REACTIONS (1)
  - Clostridium difficile colitis [None]
